FAERS Safety Report 23681215 (Version 1)
Quarter: 2024Q1

REPORT INFORMATION
  Report Type: Spontaneous
  Country: US (occurrence: US)
  Receive Date: 20240328
  Receipt Date: 20240328
  Transmission Date: 20240410
  Serious: No
  Sender: FDA-Public Use
  Company Number: US-REVANCE THERAPEUTICS INC.-US-REV-2023-000583

PATIENT

DRUGS (14)
  1. DAXIBOTULINUMTOXIN A-LANM [Suspect]
     Active Substance: DAXIBOTULINUMTOXIN A-LANM
     Indication: Skin wrinkling
     Dosage: 120 UNITS (24 U, 32 U, 16 U, 48 U)
     Route: 065
     Dates: start: 20230518
  2. DYSPORT [Concomitant]
     Active Substance: ABOBOTULINUMTOXINA
     Indication: Product used for unknown indication
     Dosage: UNK
     Dates: start: 2023
  3. DYSPORT [Concomitant]
     Active Substance: ABOBOTULINUMTOXINA
     Dosage: UNK
     Dates: start: 20191113
  4. DYSPORT [Concomitant]
     Active Substance: ABOBOTULINUMTOXINA
     Dosage: UNK
     Dates: start: 20200514
  5. DYSPORT [Concomitant]
     Active Substance: ABOBOTULINUMTOXINA
     Dosage: UNK
     Dates: start: 20201012
  6. DYSPORT [Concomitant]
     Active Substance: ABOBOTULINUMTOXINA
     Dosage: UNK
     Dates: start: 20210225
  7. DYSPORT [Concomitant]
     Active Substance: ABOBOTULINUMTOXINA
     Dosage: UNK
     Dates: start: 20210624
  8. DYSPORT [Concomitant]
     Active Substance: ABOBOTULINUMTOXINA
     Dosage: UNK
     Dates: start: 20211029
  9. DYSPORT [Concomitant]
     Active Substance: ABOBOTULINUMTOXINA
     Dosage: UNK
     Dates: start: 20220117
  10. DYSPORT [Concomitant]
     Active Substance: ABOBOTULINUMTOXINA
     Dosage: UNK
     Dates: start: 20220428
  11. DYSPORT [Concomitant]
     Active Substance: ABOBOTULINUMTOXINA
     Dosage: UNK
     Dates: start: 20220727
  12. DYSPORT [Concomitant]
     Active Substance: ABOBOTULINUMTOXINA
     Dosage: UNK
     Dates: start: 20221026
  13. DYSPORT [Concomitant]
     Active Substance: ABOBOTULINUMTOXINA
     Dosage: UNK
     Dates: start: 20230209
  14. DYSPORT [Concomitant]
     Active Substance: ABOBOTULINUMTOXINA
     Dosage: UNK
     Dates: start: 20230928

REACTIONS (2)
  - Drug ineffective [Not Recovered/Not Resolved]
  - Off label use [Unknown]

NARRATIVE: CASE EVENT DATE: 20230518
